FAERS Safety Report 9571256 (Version 2)
Quarter: 2013Q4

REPORT INFORMATION
  Report Type: Spontaneous
  Country: SE (occurrence: SE)
  Receive Date: 20131001
  Receipt Date: 20131001
  Transmission Date: 20140711
  Serious: Yes (Disabling, Other)
  Sender: FDA-Public Use
  Company Number: SE-ASTELLAS-2013EU007739

PATIENT
  Sex: Female

DRUGS (2)
  1. BETMIGA [Suspect]
     Indication: MICTURITION URGENCY
     Dosage: 50 MG, UID/QD
     Route: 048
  2. BETMIGA [Suspect]
     Indication: INCONTINENCE

REACTIONS (3)
  - Tachycardia [Recovered/Resolved]
  - Chest pain [Recovered/Resolved]
  - General physical health deterioration [Recovered/Resolved]
